FAERS Safety Report 6890215-5 (Version None)
Quarter: 2010Q3

REPORT INFORMATION
  Report Type: 
  Country: None (occurrence: None)
  Receive Date: 20100730
  Receipt Date: 20080904
  Transmission Date: 20110219
  Serious: No
  Sender: FDA-Public Use
  Company Number: US-PFIZER INC-2008074386

PATIENT
  Sex: Female
  Weight: 51.363 kg

DRUGS (7)
  1. LIPITOR [Suspect]
     Indication: BLOOD CHOLESTEROL ABNORMAL
     Dates: start: 20080602
  2. WARFARIN SODIUM [Suspect]
  3. ESTROGENS SOL/INJ [Suspect]
  4. BENAZEPRIL HYDROCHLORIDE [Concomitant]
  5. CALCITRIOL [Concomitant]
  6. CLONAZEPAM [Concomitant]
  7. FOLIC ACID [Concomitant]

REACTIONS (4)
  - ABDOMINAL PAIN UPPER [None]
  - ALOPECIA [None]
  - BURNING SENSATION [None]
  - HOT FLUSH [None]
